FAERS Safety Report 10935357 (Version 1)
Quarter: 2015Q1

REPORT INFORMATION
  Report Type: Spontaneous
  Country: CH (occurrence: CH)
  Receive Date: 20150320
  Receipt Date: 20150320
  Transmission Date: 20150721
  Serious: Yes (Other)
  Sender: FDA-Public Use
  Company Number: CH-WATSON-2015-05038

PATIENT
  Age: 68 Year
  Sex: Female

DRUGS (3)
  1. ROPINIROLE HYDROCHLORIDE (UNKNOWN) [Suspect]
     Active Substance: ROPINIROLE HYDROCHLORIDE
     Indication: PARKINSON^S DISEASE
     Dosage: 4 MG, DAILY
     Route: 065
  2. LEVODOPA [Suspect]
     Active Substance: LEVODOPA
     Indication: PARKINSON^S DISEASE
     Dosage: 300 MG, DAILY
     Route: 065
  3. LEVODOPA [Suspect]
     Active Substance: LEVODOPA
     Dosage: 600 MG, DAILY
     Route: 065

REACTIONS (1)
  - Pleurothotonus [Recovered/Resolved]

NARRATIVE: CASE EVENT DATE: 201301
